FAERS Safety Report 16534340 (Version 1)
Quarter: 2019Q3

REPORT INFORMATION
  Report Type: Spontaneous
  Country: SE (occurrence: SE)
  Receive Date: 20190705
  Receipt Date: 20190705
  Transmission Date: 20191004
  Serious: Yes (Hospitalization)
  Sender: FDA-Public Use
  Company Number: SE-SCIEGEN PHARMACEUTICALS INC-2019SCILIT00209

PATIENT
  Age: 36 Year
  Sex: Male

DRUGS (1)
  1. QUETIAPINE. [Suspect]
     Active Substance: QUETIAPINE

REACTIONS (2)
  - Bezoar [Recovering/Resolving]
  - Overdose [Unknown]
